FAERS Safety Report 21450742 (Version 1)
Quarter: 2022Q4

REPORT INFORMATION
  Report Type: Spontaneous
  Country: DK (occurrence: DK)
  Receive Date: 20221013
  Receipt Date: 20221013
  Transmission Date: 20230113
  Serious: Yes (Hospitalization, Disabling)
  Sender: FDA-Public Use
  Company Number: None

PATIENT
  Age: 67 Year
  Sex: Male

DRUGS (1)
  1. DICLOXACILLIN SODIUM [Suspect]
     Active Substance: DICLOXACILLIN SODIUM
     Indication: Infection
     Dosage: UNK (DOSE: UNKNOWN, STRENGTH: UNKNOWN)
     Route: 048
     Dates: start: 20180723

REACTIONS (17)
  - Hyperaesthesia [Unknown]
  - Hepatic function abnormal [Not Recovered/Not Resolved]
  - Fatigue [Recovering/Resolving]
  - Depression [Unknown]
  - Weight decreased [Unknown]
  - Gait disturbance [Not Recovered/Not Resolved]
  - Disturbance in attention [Unknown]
  - Poisoning [Unknown]
  - Bowel movement irregularity [Recovering/Resolving]
  - Chills [Unknown]
  - Sensory disturbance [Recovering/Resolving]
  - Decreased appetite [Unknown]
  - Balance disorder [Not Recovered/Not Resolved]
  - Pruritus [Recovered/Resolved]
  - Rash [Not Recovered/Not Resolved]
  - Vomiting [Recovering/Resolving]
  - Renal impairment [Not Recovered/Not Resolved]

NARRATIVE: CASE EVENT DATE: 20180101
